FAERS Safety Report 20561327 (Version 1)
Quarter: 2022Q1

REPORT INFORMATION
  Report Type: Spontaneous
  Country: US (occurrence: US)
  Receive Date: 20220307
  Receipt Date: 20220307
  Transmission Date: 20220423
  Serious: No
  Sender: FDA-Public Use
  Company Number: US-AMGEN-USASP2022034805

PATIENT
  Age: 60 Year
  Sex: Female

DRUGS (1)
  1. RITUXIMAB [Suspect]
     Active Substance: RITUXIMAB
     Indication: Dermatomyositis
     Dosage: UNK
     Route: 065

REACTIONS (4)
  - Drug effective for unapproved indication [Unknown]
  - Calcinosis [Unknown]
  - Muscle atrophy [Unknown]
  - Off label use [Unknown]
